FAERS Safety Report 4657527-7 (Version None)
Quarter: 2005Q2

REPORT INFORMATION
  Report Type: 
  Country: None (occurrence: None)
  Receive Date: 20050405
  Receipt Date: 20041203
  Transmission Date: 20051028
  Serious: Yes (Other)
  Sender: FDA-Public Use
  Company Number: 2004076792

PATIENT
  Age: 45 Year
  Sex: Female

DRUGS (5)
  1. GEODON [Suspect]
     Indication: OBSESSIVE-COMPULSIVE DISORDER
     Dosage: 160 MG (80 MG,2 IN 1 D),ORAL
     Route: 048
     Dates: start: 20040112, end: 20040202
  2. GEODON [Suspect]
     Indication: TIC
     Dosage: 160 MG (80 MG,2 IN 1 D),ORAL
     Route: 048
     Dates: start: 20040112, end: 20040202
  3. SERTRALINE HCL [Concomitant]
  4. LEVOTHYROXINE SODIUM [Concomitant]
  5. ACETYLSALICYLIC ACID SRT [Concomitant]

REACTIONS (9)
  - ANXIETY [None]
  - BRUXISM [None]
  - DYSKINESIA [None]
  - DYSTONIA [None]
  - JAW DISORDER [None]
  - MUSCLE TIGHTNESS [None]
  - OBSESSIVE-COMPULSIVE DISORDER [None]
  - RASH [None]
  - TIC [None]
